FAERS Safety Report 5896366-6 (Version None)
Quarter: 2008Q3

REPORT INFORMATION
  Report Type: 
  Country: None (occurrence: None)
  Receive Date: 20080924
  Receipt Date: 20071106
  Transmission Date: 20090109
  Serious: Yes (Hospitalization)
  Sender: FDA-Public Use
  Company Number: US-ASTRAZENECA-2007UW23190

PATIENT
  Age: 14213 Day
  Sex: Male
  Weight: 93.4 kg

DRUGS (7)
  1. SEROQUEL [Suspect]
     Indication: BIPOLAR DISORDER
     Route: 048
     Dates: start: 20070825, end: 20070801
  2. SEROQUEL [Suspect]
     Indication: DEPRESSION
     Route: 048
     Dates: start: 20070825, end: 20070801
  3. SEROQUEL [Suspect]
     Indication: ANXIETY
     Route: 048
     Dates: start: 20070825, end: 20070801
  4. WELLBUTRIN [Concomitant]
     Route: 048
  5. TEGRETOL [Concomitant]
  6. SINGULAIR [Concomitant]
     Route: 048
  7. LOVASTATIN [Concomitant]
     Route: 048

REACTIONS (1)
  - ORTHOSTATIC HYPOTENSION [None]
